FAERS Safety Report 21543810 (Version 6)
Quarter: 2023Q2

REPORT INFORMATION
  Report Type: Spontaneous
  Country: PT (occurrence: PT)
  Receive Date: 20221102
  Receipt Date: 20230421
  Transmission Date: 20230722
  Serious: Yes (Hospitalization, Other)
  Sender: FDA-Public Use
  Company Number: PT-TOWA-202203693

PATIENT
  Age: 79 Year
  Sex: Female

DRUGS (2)
  1. METFORMIN HYDROCHLORIDE [Suspect]
     Active Substance: METFORMIN HYDROCHLORIDE
     Indication: Type 2 diabetes mellitus
     Dosage: 1000 MG, TID (1000 MG, Q8H)
     Route: 048
  2. METFORMIN HYDROCHLORIDE [Suspect]
     Active Substance: METFORMIN HYDROCHLORIDE
     Dosage: 1000 MG, QD
     Route: 065

REACTIONS (5)
  - Lactic acidosis [Recovered/Resolved]
  - Metabolic acidosis [Recovered/Resolved]
  - Fatigue [Recovered/Resolved]
  - Hyperlactacidaemia [Recovered/Resolved]
  - Hypochromic anaemia [Recovered/Resolved]
